FAERS Safety Report 5456226-1 (Version None)
Quarter: 2007Q3

REPORT INFORMATION
  Report Type: 
  Country: None (occurrence: None)
  Receive Date: 20070918
  Receipt Date: 20070228
  Transmission Date: 20080115
  Serious: Yes (Other)
  Sender: FDA-Public Use
  Company Number: US-ASTRAZENECA-2006UW23293

PATIENT
  Sex: Female
  Weight: 108.2 kg

DRUGS (5)
  1. SEROQUEL [Suspect]
     Indication: ANXIETY
     Route: 048
     Dates: start: 20050301, end: 20061101
  2. SEROQUEL [Suspect]
     Indication: DEPRESSION
     Route: 048
     Dates: start: 20050301, end: 20061101
  3. LEXAPRO [Concomitant]
  4. KLONOPIN [Concomitant]
  5. METHADONE HCL [Concomitant]
     Dates: start: 19990101

REACTIONS (2)
  - DRUG EXPOSURE DURING PREGNANCY [None]
  - PANCREATITIS [None]
